FAERS Safety Report 7530556-1 (Version None)
Quarter: 2011Q2

REPORT INFORMATION
  Report Type: 
  Country: None (occurrence: None)
  Receive Date: 20110607
  Receipt Date: 20090209
  Transmission Date: 20111010
  Serious: Yes (Hospitalization, Other)
  Sender: FDA-Public Use
  Company Number: US-BAYER-200912400NA

PATIENT
  Sex: Male
  Weight: 100 kg

DRUGS (13)
  1. LANOXIN [Concomitant]
     Dosage: 0.125MG / DAILY
  2. TRASYLOL [Suspect]
     Indication: MITRAL VALVE REPAIR
  3. NIACIN [Concomitant]
     Dosage: 500MG / DAILY
     Route: 048
  4. COREG [Concomitant]
     Dosage: 25MG X 2 DAILY
     Route: 048
  5. COZAAR [Concomitant]
     Dosage: 100MG / DAILY
     Route: 048
  6. ALDACTONE [Concomitant]
     Dosage: 25MG / DAILY
     Route: 048
  7. LISINOPRIL [Concomitant]
     Dosage: 5 MG TWICE DAILY
     Route: 048
  8. NITROGLYCERIN [Concomitant]
     Route: 061
  9. PROTAMINE SULFATE [Concomitant]
     Dosage: 40,000 MG
     Route: 042
     Dates: start: 20051219, end: 20051219
  10. TRASYLOL [Suspect]
     Indication: CORONARY ARTERY BYPASS
     Dosage: 200ML LOADING DOSE FOLLOWED BY 50 ML/HOUR INFUSION
     Route: 042
     Dates: start: 20051219, end: 20051219
  11. LASIX [Concomitant]
     Dosage: 40MG / DAILY
     Route: 048
  12. HEPARIN [Concomitant]
     Dosage: 80,000 UNITS
     Route: 042
  13. EPINEPHRINE [Concomitant]
     Dosage: 0.5
     Route: 042
     Dates: start: 20051219, end: 20051219

REACTIONS (5)
  - RENAL FAILURE [None]
  - PAIN [None]
  - UNEVALUABLE EVENT [None]
  - RENAL FAILURE ACUTE [None]
  - INJURY [None]
